FAERS Safety Report 18588270 (Version 1)
Quarter: 2020Q4

REPORT INFORMATION
  Report Type: Spontaneous
  Country: US (occurrence: US)
  Receive Date: 20201207
  Receipt Date: 20201207
  Transmission Date: 20210114
  Serious: Yes (Other)
  Sender: FDA-Public Use
  Company Number: US-COLLEGIUM PHARMACEUTICAL, INC.-2020CGM00431

PATIENT
  Sex: Male

DRUGS (6)
  1. IBUPROFEN. [Concomitant]
     Active Substance: IBUPROFEN
  2. XTAMPZA ER [Suspect]
     Active Substance: OXYCODONE
     Indication: NERVE INJURY
     Dosage: 36 MG, 3X/DAY
  3. MOVANTIK [Concomitant]
     Active Substance: NALOXEGOL OXALATE
  4. OXYCODONE [Concomitant]
     Active Substance: OXYCODONE
  5. SENOKOT [Concomitant]
     Active Substance: SENNOSIDES
  6. MIRALAX [Concomitant]
     Active Substance: POLYETHYLENE GLYCOL 3350

REACTIONS (5)
  - Surgery [Unknown]
  - Hydrocele [Unknown]
  - Off label use [Unknown]
  - Drug screen positive [Unknown]
  - Neurectomy [Unknown]

NARRATIVE: CASE EVENT DATE: 202008
